FAERS Safety Report 7903335 (Version 2)
Quarter: 2014Q1

REPORT INFORMATION
  Report Type: Spontaneous
  Country: US (occurrence: US)
  Receive Date: 20110418
  Receipt Date: 20140103
  Transmission Date: 20141002
  Serious: Yes (Hospitalization, Other)
  Sender: FDA-Public Use
  Company Number: US-ASTRAZENECA-2011SE19934

PATIENT
  Age: 45 Year
  Sex: Male
  Weight: 136.1 kg

DRUGS (5)
  1. NEXIUM [Suspect]
     Indication: GASTROOESOPHAGEAL REFLUX DISEASE
     Route: 048
     Dates: start: 2004
  2. CYMBALTA [Concomitant]
     Indication: ARTHRITIS
     Route: 048
     Dates: start: 2012
  3. SINGULAIR [Concomitant]
     Indication: HYPERSENSITIVITY
     Dosage: DAILY
     Route: 048
     Dates: start: 2011
  4. CARAFATE [Concomitant]
     Indication: CROHN^S DISEASE
     Route: 048
     Dates: start: 201310
  5. STATIN [Concomitant]
     Indication: BLOOD CHOLESTEROL ABNORMAL
     Route: 048
     Dates: start: 201307

REACTIONS (8)
  - Pneumonia [Unknown]
  - Bronchitis [Unknown]
  - Sinusitis [Unknown]
  - Suicidal ideation [Unknown]
  - Crohn^s disease [Unknown]
  - Adverse drug reaction [Unknown]
  - Intentional drug misuse [Unknown]
  - Off label use [Unknown]
